FAERS Safety Report 6144988 (Version 22)
Quarter: 2012Q4

REPORT INFORMATION
  Report Type: 
  Country: VE (occurrence: VE)
  Receive Date: 20061011
  Receipt Date: 20121029
  Transmission Date: 20130627
  Serious: Yes (Other)
  Sender: FDA-Public Use
  Company Number: PHHO2006VE08825

PATIENT
  Age: 29 Year
  Sex: Male

DRUGS (4)
  1. LEPONEX [Suspect]
     Indication: SCHIZOPHRENIA
     Dosage: 100 mg, UNK
     Route: 048
     Dates: start: 20060426
  2. LEPONEX [Suspect]
     Dosage: 200 mg, UNK
     Dates: start: 200606
  3. LEPONEX [Suspect]
     Dosage: 100 mg, UNK
     Route: 048
  4. LEPONEX [Suspect]
     Dosage: 50 mg
     Route: 048
     Dates: end: 20120515

REACTIONS (4)
  - White blood cell count decreased [Recovered/Resolved]
  - Neutrophil count decreased [Recovered/Resolved]
  - Lymphocyte count increased [Recovered/Resolved]
  - Monocyte percentage decreased [Recovered/Resolved]
